FAERS Safety Report 7351128-8 (Version None)
Quarter: 2011Q1

REPORT INFORMATION
  Report Type: 
  Country: None (occurrence: None)
  Receive Date: 20110314
  Receipt Date: 20090706
  Transmission Date: 20110831
  Serious: Yes (Hospitalization)
  Sender: FDA-Public Use
  Company Number: AU-PFIZER INC-2009235993

PATIENT
  Age: 45 Year
  Sex: Female

DRUGS (4)
  1. ESCITALOPRAM [Concomitant]
  2. TENSIG [Concomitant]
  3. CHAMPIX [Suspect]
     Indication: TOBACCO USER
     Dosage: UNK
     Route: 048
     Dates: start: 20090323, end: 20090415
  4. LIPITOR [Concomitant]

REACTIONS (5)
  - INSOMNIA [None]
  - PAIN [None]
  - MEMORY IMPAIRMENT [None]
  - FEAR [None]
  - HEADACHE [None]
